FAERS Safety Report 6709692-5 (Version None)
Quarter: 2010Q2

REPORT INFORMATION
  Report Type: 
  Country: None (occurrence: None)
  Receive Date: 20100504
  Receipt Date: 20100422
  Transmission Date: 20101027
  Serious: Yes (Hospitalization, Other)
  Sender: FDA-Public Use
  Company Number: BR-BAYER-201010772LA

PATIENT
  Age: 27 Year
  Sex: Female

DRUGS (7)
  1. BETAFERON [Suspect]
     Indication: MULTIPLE SCLEROSIS
     Route: 058
     Dates: start: 20090601, end: 20091216
  2. CIPROFLOXACIN [Concomitant]
     Indication: URINARY TRACT INFECTION
     Route: 048
     Dates: start: 20090501
  3. CARBAMAZEPINE [Concomitant]
     Indication: CONVULSION
     Dosage: AS USED: 3 DF
     Route: 048
     Dates: start: 20050101
  4. RIVOTRIL [Concomitant]
     Indication: CONVULSION
     Dosage: AS USED: 3 DF
     Route: 048
     Dates: start: 20080101
  5. HIDANTAL [Concomitant]
     Indication: CONVULSION
     Dosage: AS USED: 2 DF
     Route: 048
     Dates: start: 20040101, end: 20080101
  6. UNKNOWN DRUG [Concomitant]
     Indication: PAIN
     Dosage: TOTAL DAILY DOSE: 1 DF
     Route: 048
     Dates: start: 20090601, end: 20090101
  7. OXCARBAZEPINE [Concomitant]
     Indication: CONVULSION
     Route: 048

REACTIONS (10)
  - CONVULSION [None]
  - CYANOSIS [None]
  - FOREIGN BODY ASPIRATION [None]
  - HOSPITALISATION [None]
  - INCREASED UPPER AIRWAY SECRETION [None]
  - PYREXIA [None]
  - RESPIRATORY ARREST [None]
  - SEPSIS [None]
  - SPEECH DISORDER [None]
  - URINARY TRACT INFECTION [None]
